FAERS Safety Report 8007057-X (Version None)
Quarter: 2011Q4

REPORT INFORMATION
  Report Type: 
  Country: None (occurrence: None)
  Receive Date: 20111222
  Receipt Date: 20111222
  Transmission Date: 20120403
  Serious: Yes (Hospitalization)
  Sender: FDA-Public Use
  Company Number: None

PATIENT
  Sex: Male
  Weight: 83.6 kg

DRUGS (2)
  1. TAXOL [Suspect]
     Dosage: 800 MG
  2. CARBOPLATIN [Suspect]
     Dosage: 1246 MG

REACTIONS (1)
  - NEUTROPHIL COUNT DECREASED [None]
